FAERS Safety Report 5076740-0 (Version None)
Quarter: 2006Q3

REPORT INFORMATION
  Report Type: 
  Country: None (occurrence: None)
  Receive Date: 20060807
  Receipt Date: 20060727
  Transmission Date: 20061208
  Serious: Yes (Hospitalization)
  Sender: FDA-Public Use
  Company Number: GR200607004716

PATIENT
  Age: 57 Year
  Sex: Female

DRUGS (1)
  1. RALOXIFENE HCL [Suspect]
     Indication: OSTEOPOROSIS
     Dosage: ORAL
     Route: 048
     Dates: start: 20040101, end: 20060601

REACTIONS (3)
  - ALCOHOL USE [None]
  - ISCHAEMIC STROKE [None]
  - TREATMENT NONCOMPLIANCE [None]
